FAERS Safety Report 20626843 (Version 1)
Quarter: 2022Q1

REPORT INFORMATION
  Report Type: Spontaneous
  Country: US (occurrence: US)
  Receive Date: 20220323
  Receipt Date: 20220323
  Transmission Date: 20220423
  Serious: No
  Sender: FDA-Public Use
  Company Number: US-009507513-2203USA005340

PATIENT
  Sex: Female

DRUGS (15)
  1. PRINIVIL [Suspect]
     Active Substance: LISINOPRIL
     Indication: Hypertension
     Dosage: ONE AND ONE HALF OF 10 MG TABLETS BY MOUTH DAILY
     Route: 048
  2. ASPIRIN [Suspect]
     Active Substance: ASPIRIN
     Dosage: ONE (81 MG) TABLET BY MOUTH ONCE A DAY
     Route: 048
  3. LASIX [Concomitant]
     Active Substance: FUROSEMIDE
     Indication: Hypertension
     Dosage: ONE (40 MG) TABLET BY MOUTH DAILY IN AM
     Route: 048
  4. LEVOXYL [Concomitant]
     Active Substance: LEVOTHYROXINE SODIUM
     Indication: Thyroid disorder
     Dosage: ONE (112 MCG) TABLET BY MOUTH DAILY ON EMPTY STOMACH
     Route: 048
  5. ALLOPURINOL [Concomitant]
     Active Substance: ALLOPURINOL
     Dosage: 1 (100 MG) TABLET BY MOUTH DAILY
     Route: 048
  6. ZANTAC [Concomitant]
     Active Substance: RANITIDINE HYDROCHLORIDE
     Dosage: STRENGTH: 75 (UNIT NOT PROVIDED), DOSE: ONE TABLET BY MOUTH ONCE A DAY
     Route: 048
  7. FOLIC ACID [Concomitant]
     Active Substance: FOLIC ACID
     Dosage: ONE (1 MG) TABLET BY MOUTH DAILY
     Route: 048
  8. CHOLECALCIFEROL [Concomitant]
     Active Substance: CHOLECALCIFEROL
     Dosage: STRENGTH: 1000 ^UNIT^, 4 (4000 UNITS) TABLETS BY MOUTH DAILY
     Route: 048
  9. VITAMIN C [Concomitant]
     Active Substance: ASCORBIC ACID
     Dosage: ONE (500 MG) TABLET BY MOUTH TWO TIMES DAILY WITH IRON SUPPLEMENT
     Route: 048
  10. ACETAMINOPHEN\HYDROCODONE [Concomitant]
     Active Substance: ACETAMINOPHEN\HYDROCODONE
     Indication: Sciatica
     Dosage: ONE (5/325 MG) TABLET BY MOUTH EVERY SIX HOURS AS NEEDED
     Route: 048
  11. ATORVASTATIN CALCIUM [Concomitant]
     Active Substance: ATORVASTATIN CALCIUM
     Indication: Blood cholesterol abnormal
     Dosage: ONE (10 MG) TABLET BY MOUTH DAILY IN THE EVENING
     Route: 048
  12. ACYCLOVIR [Concomitant]
     Active Substance: ACYCLOVIR
     Indication: Oral herpes
     Dosage: ONE (400 MG) TABLET BY MOUTH THREE TIMES A DAY FOR 5 DAYS
     Route: 048
  13. SODIUM BICARBONATE [Concomitant]
     Active Substance: SODIUM BICARBONATE
     Dosage: 3 (650 MG) TABLETS BY MOUTH DAILY
     Route: 048
  14. NIACIN [Concomitant]
     Active Substance: NIACIN
     Dosage: 1 (500 MG) CAP BY MOUTH DAILY
     Route: 048
  15. IRON [Concomitant]
     Active Substance: IRON
     Indication: Haemoglobin abnormal
     Dosage: UNK
     Route: 042

REACTIONS (1)
  - Labelled drug-drug interaction issue [Unknown]
